FAERS Safety Report 24068454 (Version 1)
Quarter: 2024Q3

REPORT INFORMATION
  Report Type: Spontaneous
  Country: NO (occurrence: NO)
  Receive Date: 20240710
  Receipt Date: 20240710
  Transmission Date: 20241016
  Serious: No
  Sender: ROCHE
  Company Number: None

PATIENT
  Age: 53 Year
  Sex: Female
  Weight: 75.0 kg

DRUGS (1)
  1. VABYSMO [Suspect]
     Active Substance: FARICIMAB\FARICIMAB-SVOA
     Indication: Exudative retinopathy
     Dosage: INJECTION EVERY 4. WEEK (UNIT DOSE NOT REPORTED). ?STRENGTH: 28,8 MG/0,24 ML
     Route: 065
     Dates: start: 202311

REACTIONS (4)
  - Ocular hyperaemia [Not Recovered/Not Resolved]
  - Visual impairment [Not Recovered/Not Resolved]
  - Dry eye [Unknown]
  - Eye pain [Not Recovered/Not Resolved]

NARRATIVE: CASE EVENT DATE: 20231101
